FAERS Safety Report 7892897-8 (Version None)
Quarter: 2011Q4

REPORT INFORMATION
  Report Type: 
  Country: None (occurrence: None)
  Receive Date: 20111104
  Receipt Date: 20111028
  Transmission Date: 20120403
  Serious: Yes (Death, Hospitalization, Other)
  Sender: FDA-Public Use
  Company Number: US-JNJFOC-20111012954

PATIENT
  Sex: Female
  Weight: 54.43 kg

DRUGS (4)
  1. DURAGESIC-100 [Suspect]
     Route: 062
  2. DURAGESIC-100 [Suspect]
     Route: 062
     Dates: start: 19950101
  3. DURAGESIC-100 [Suspect]
     Indication: PAIN
     Route: 062
  4. DURAGESIC-100 [Suspect]
     Route: 062

REACTIONS (9)
  - HOSPITALISATION [None]
  - PRODUCT QUALITY ISSUE [None]
  - UROSEPSIS [None]
  - URINARY TRACT INFECTION [None]
  - CEREBRAL HAEMATOMA [None]
  - CERVICAL VERTEBRAL FRACTURE [None]
  - FALL [None]
  - BODY HEIGHT DECREASED [None]
  - DRUG ADMINISTERED AT INAPPROPRIATE SITE [None]
